FAERS Safety Report 5210351-9 (Version None)
Quarter: 2007Q1

REPORT INFORMATION
  Report Type: 
  Country: None (occurrence: None)
  Receive Date: 20070117
  Receipt Date: 20070103
  Transmission Date: 20070707
  Serious: Yes (Hospitalization)
  Sender: FDA-Public Use
  Company Number: PHEH2007US00500

PATIENT

DRUGS (1)
  1. ZELNORM [Suspect]

REACTIONS (2)
  - ABDOMINAL PAIN [None]
  - INTESTINAL ISCHAEMIA [None]
